FAERS Safety Report 19441650 (Version 1)
Quarter: 2021Q2

REPORT INFORMATION
  Report Type: Spontaneous
  Country: US (occurrence: US)
  Receive Date: 20210621
  Receipt Date: 20210621
  Transmission Date: 20210717
  Serious: Yes (Other)
  Sender: FDA-Public Use
  Company Number: US-DRREDDYS-SPO/USA/21/0136691

PATIENT
  Age: 22 Year
  Sex: Female

DRUGS (1)
  1. ZENATANE [Suspect]
     Active Substance: ISOTRETINOIN
     Indication: PRODUCT USED FOR UNKNOWN INDICATION
     Dosage: RMA ISSUE DATE: 26/APRIL/2021 4:33:41 PM, 24/FEBRUARY/2021 11:11:49 AM, 9/JANUARY/2021 8:17:02 AM, 3

REACTIONS (1)
  - Depression [Unknown]
